FAERS Safety Report 6330032-8 (Version None)
Quarter: 2009Q3

REPORT INFORMATION
  Report Type: 
  Country: None (occurrence: None)
  Receive Date: 20090825
  Receipt Date: 20090818
  Transmission Date: 20100115
  Serious: Yes (Hospitalization)
  Sender: FDA-Public Use
  Company Number: TPA2009A02392

PATIENT
  Age: 75 Year
  Sex: Male

DRUGS (6)
  1. ACTOS [Suspect]
     Indication: DRUG USE FOR UNKNOWN INDICATION
     Dosage: 15 MG, 1 IN 1 D, PER ORAL;  30 MG, 1 IN 1 D, PER ORAL
     Route: 048
  2. METFORMIN HCL [Concomitant]
  3. JANUVIA (ALL OTHER THERAPEUTIC PRODUCTS) [Concomitant]
  4. NIACIN [Concomitant]
  5. LISINOPRIL [Concomitant]
  6. LOVASTATIN [Concomitant]

REACTIONS (2)
  - ACUTE PULMONARY OEDEMA [None]
  - ACUTE RESPIRATORY DISTRESS SYNDROME [None]
